FAERS Safety Report 8231812-4 (Version None)
Quarter: 2012Q1

REPORT INFORMATION
  Report Type: 
  Country: None (occurrence: None)
  Receive Date: 20120323
  Receipt Date: 20120315
  Transmission Date: 20120608
  Serious: Yes (Other)
  Sender: FDA-Public Use
  Company Number: CA-JNJFOC-20120307917

PATIENT
  Sex: Male
  Weight: 86.6 kg

DRUGS (8)
  1. ASPIRIN [Concomitant]
     Route: 065
  2. RAMIPRIL [Concomitant]
     Route: 065
  3. VITAMIN D [Concomitant]
     Route: 065
  4. ATORVASTATIN [Concomitant]
     Route: 065
  5. MESALAMINE [Concomitant]
     Route: 065
  6. REMICADE [Suspect]
     Indication: CROHN'S DISEASE
     Route: 042
     Dates: start: 20110407
  7. CALCIUM CARBONATE [Concomitant]
     Route: 065
  8. CODEINE [Concomitant]
     Route: 065

REACTIONS (1)
  - CATARACT [None]
